FAERS Safety Report 10365298 (Version 1)
Quarter: 2014Q3

REPORT INFORMATION
  Report Type: Spontaneous
  Country: US (occurrence: None)
  Receive Date: 20140804
  Receipt Date: 20140804
  Transmission Date: 20150326
  Serious: Yes (Hospitalization, Congenital Anomaly, Other)
  Sender: FDA-Public Use
  Company Number: 2014AP003752

PATIENT
  Age: 0 Day
  Sex: Male

DRUGS (9)
  1. PAROXETINE HYDROCHLORIDE. [Suspect]
     Active Substance: PAROXETINE HYDROCHLORIDE
     Indication: PANIC ATTACK
     Route: 064
     Dates: start: 1996
  2. PAROXETINE HYDROCHLORIDE. [Suspect]
     Active Substance: PAROXETINE HYDROCHLORIDE
     Indication: DEPRESSION
     Route: 064
     Dates: start: 1996
  3. OMEPRAZOLE. [Concomitant]
     Active Substance: OMEPRAZOLE
  4. PAROXETINE HYDROCHLORIDE. [Suspect]
     Active Substance: PAROXETINE HYDROCHLORIDE
     Indication: BIPOLAR DISORDER
     Route: 064
     Dates: start: 1996
  5. PERPHENAZINE. [Concomitant]
     Active Substance: PERPHENAZINE
  6. ALPRAZOLAM. [Concomitant]
     Active Substance: ALPRAZOLAM
  7. ZOLOFT [Concomitant]
     Active Substance: SERTRALINE HYDROCHLORIDE
  8. LORATADINE. [Concomitant]
     Active Substance: LORATADINE
  9. TETRACYCLINE [Concomitant]
     Active Substance: TETRACYCLINE

REACTIONS (8)
  - Atrial septal defect [None]
  - Congenital tricuspid valve atresia [None]
  - Cardiac murmur [None]
  - Foetal exposure during pregnancy [None]
  - Maternal drugs affecting foetus [None]
  - Right ventricular hypertrophy [None]
  - Sick sinus syndrome [None]
  - Alopecia [None]

NARRATIVE: CASE EVENT DATE: 19961124
